FAERS Safety Report 25302615 (Version 1)
Quarter: 2025Q2

REPORT INFORMATION
  Report Type: Report from Study
  Country: FR (occurrence: FR)
  Receive Date: 20250512
  Receipt Date: 20250512
  Transmission Date: 20250716
  Serious: Yes (Congenital Anomaly)
  Sender: MYLAN
  Company Number: FR-GILEAD-2025-0710550

PATIENT

DRUGS (2)
  1. EMTRICITABINE\TENOFOVIR DISOPROXIL [Suspect]
     Active Substance: EMTRICITABINE\TENOFOVIR DISOPROXIL
     Indication: Product used for unknown indication
  2. LOPINAVIR\RITONAVIR [Suspect]
     Active Substance: LOPINAVIR\RITONAVIR
     Indication: Product used for unknown indication

REACTIONS (2)
  - Neurodevelopmental disorder [Unknown]
  - Foetal exposure during pregnancy [Recovered/Resolved]
